FAERS Safety Report 14457061 (Version 1)
Quarter: 2018Q1

REPORT INFORMATION
  Report Type: Spontaneous
  Country: FR (occurrence: FR)
  Receive Date: 20180130
  Receipt Date: 20180130
  Transmission Date: 20180509
  Serious: Yes (Hospitalization)
  Sender: FDA-Public Use
  Company Number: FR-TEVA-2018-FR-849564

PATIENT
  Age: 86 Year
  Sex: Male
  Weight: 79 kg

DRUGS (6)
  1. SETOFILM 8 MG, FILM ORODISPERSIBLE [Concomitant]
     Indication: PROPHYLAXIS OF NAUSEA AND VOMITING
     Route: 048
     Dates: start: 20171024, end: 20171024
  2. PACLITAXEL TEVA [Suspect]
     Active Substance: PACLITAXEL
     Indication: PROSTATE CANCER
     Route: 042
     Dates: start: 20170608, end: 20171024
  3. DESLORATADINE. [Concomitant]
     Active Substance: DESLORATADINE
     Indication: PREMEDICATION
     Route: 048
     Dates: start: 20171024, end: 20171024
  4. POLARAMINE 2 MG, COMPRIME SECABLE [Concomitant]
     Indication: PREMEDICATION
     Route: 048
     Dates: start: 20171024, end: 20171024
  5. CORTANCYL [Concomitant]
     Active Substance: PREDNISONE
     Indication: PREMEDICATION
     Route: 048
     Dates: start: 20171024, end: 20171024
  6. AZANTAC [Concomitant]
     Active Substance: RANITIDINE HYDROCHLORIDE
     Indication: PREMEDICATION
     Route: 048
     Dates: start: 20171024, end: 20171024

REACTIONS (3)
  - Neurotoxicity [Not Recovered/Not Resolved]
  - Neuralgia [Not Recovered/Not Resolved]
  - Onycholysis [Not Recovered/Not Resolved]

NARRATIVE: CASE EVENT DATE: 20171030
